FAERS Safety Report 8056363-1 (Version None)
Quarter: 2012Q1

REPORT INFORMATION
  Report Type: 
  Country: None (occurrence: None)
  Receive Date: 20120119
  Receipt Date: 20110214
  Transmission Date: 20120608
  Serious: Yes (Hospitalization)
  Sender: FDA-Public Use
  Company Number: US-SANOFI-AVENTIS-2011SA009915

PATIENT
  Age: 51 Year
  Sex: Male
  Weight: 78 kg

DRUGS (11)
  1. LASIX [Suspect]
     Route: 048
     Dates: start: 20100428, end: 20110124
  2. INVESTIGATIONAL DRUG [Concomitant]
     Indication: HEPATIC ENCEPHALOPATHY
     Route: 048
     Dates: start: 20101213, end: 20110202
  3. NOROXIN [Concomitant]
     Dates: start: 20090101
  4. LASIX [Suspect]
     Indication: ASCITES
     Route: 048
     Dates: start: 20100428, end: 20110124
  5. LEVOTHYROXINE SODIUM [Concomitant]
     Dates: start: 20100113
  6. SPIRONOLACTONE [Suspect]
     Indication: ASCITES
     Route: 048
     Dates: start: 20100428, end: 20110124
  7. ZINC SULFATE [Concomitant]
     Dates: start: 20101122
  8. GABAPENTIN [Concomitant]
     Dates: start: 20100820
  9. LACTULOSE [Concomitant]
     Dates: start: 20100113
  10. PANTOPRAZOLE [Concomitant]
     Dates: start: 20060101
  11. CITALOPRAM [Concomitant]
     Dates: start: 20100602

REACTIONS (1)
  - HYPONATRAEMIA [None]
